FAERS Safety Report 10238986 (Version 1)
Quarter: 2014Q2

REPORT INFORMATION
  Report Type: Spontaneous
  Country: US (occurrence: US)
  Receive Date: 20140616
  Receipt Date: 20140616
  Transmission Date: 20141212
  Serious: No
  Sender: FDA-Public Use
  Company Number: US-B.I. PHARMACEUTICALS,INC./RIDGEFIELD-2014-BI-25549BP

PATIENT
  Age: 70 Year
  Sex: Male
  Weight: 110 kg

DRUGS (3)
  1. PRADAXA [Suspect]
     Indication: ATRIAL FLUTTER
     Dosage: 300 MG
     Route: 048
     Dates: start: 20140529
  2. CARVEDILOL [Concomitant]
     Indication: HYPERTENSION
     Dosage: 50 MG
     Route: 048
     Dates: start: 2011
  3. LOSARTAN HCTZ [Concomitant]
     Indication: HYPERTENSION
     Dosage: STRENGTH: 320 MG-12.5 MG; DAILY DOSE: 320 MG-12.5 MG
     Route: 048
     Dates: start: 2011

REACTIONS (2)
  - Rash erythematous [Not Recovered/Not Resolved]
  - Off label use [Unknown]
